FAERS Safety Report 5704625-2 (Version None)
Quarter: 2008Q2

REPORT INFORMATION
  Report Type: 
  Country: None (occurrence: None)
  Receive Date: 20080414
  Receipt Date: 20080407
  Transmission Date: 20081010
  Serious: Yes (Death, Hospitalization, Disabling)
  Sender: FDA-Public Use
  Company Number: JP-ASTRAZENECA-2007SE04514

PATIENT
  Age: 34593 Day
  Sex: Female
  Weight: 36 kg

DRUGS (11)
  1. BLOPRESS [Suspect]
     Indication: CARDIAC FAILURE CHRONIC
     Route: 048
     Dates: start: 20070727, end: 20070728
  2. BLOPRESS [Suspect]
     Dates: start: 20070803, end: 20070816
  3. KALGUT [Suspect]
     Indication: CARDIAC FAILURE CHRONIC
     Route: 048
     Dates: start: 20070724
  4. KALGUT [Suspect]
  5. LASIX [Concomitant]
     Indication: CARDIAC FAILURE CHRONIC
     Route: 048
     Dates: start: 20070724
  6. LANIRAPID [Concomitant]
     Indication: CARDIAC FAILURE CHRONIC
     Route: 048
     Dates: start: 20070724
  7. ALMATOL [Concomitant]
     Indication: CARDIAC FAILURE CHRONIC
     Route: 048
     Dates: start: 20070724
  8. ASPIRIN [Concomitant]
     Indication: THROMBOSIS PROPHYLAXIS
     Route: 048
     Dates: start: 20070724
  9. PLETAL [Concomitant]
     Indication: THROMBOSIS PROPHYLAXIS
     Route: 048
     Dates: start: 20070724
  10. ASPARA K [Concomitant]
     Indication: MINERAL SUPPLEMENTATION
     Route: 048
     Dates: start: 20070724
  11. MILLISTAPE(NITROGLYCERIN) [Concomitant]
     Indication: CARDIAC FAILURE CHRONIC
     Route: 062
     Dates: start: 20070724

REACTIONS (3)
  - EMBOLIC CEREBRAL INFARCTION [None]
  - ILIAC ARTERY THROMBOSIS [None]
  - RHABDOMYOLYSIS [None]
